FAERS Safety Report 8796311 (Version 3)
Quarter: 2012Q4

REPORT INFORMATION
  Report Type: 
  Country: US (occurrence: US)
  Receive Date: 20120919
  Receipt Date: 20121203
  Transmission Date: 20130627
  Serious: Yes (Other)
  Sender: FDA-Public Use
  Company Number: US-PFIZER INC-2012230745

PATIENT
  Age: 56 Year
  Sex: Male
  Weight: 80.73 kg

DRUGS (8)
  1. NEURONTIN [Suspect]
     Indication: NEUROPATHY
     Dosage: 300 mg, 3x/day
     Route: 048
  2. ACCUPRIL [Suspect]
     Indication: BLOOD PRESSURE HIGH
     Dosage: 40 mg, daily
  3. INSULIN [Suspect]
     Indication: DIABETES
     Dosage: UNK
  4. NEXIUM [Concomitant]
     Indication: GASTROESOPHAGEAL REFLUX DISEASE
     Dosage: 40 mg, 1x/day
  5. LOVASTATIN [Concomitant]
     Indication: HIGH CHOLESTEROL
     Dosage: UNK
  6. METFORMIN [Concomitant]
     Indication: DIABETES
     Dosage: 500 mg, 2x/day
  7. LANTUS [Concomitant]
     Indication: DIABETES
     Dosage: 80 units, 1x/day
  8. COUMADIN [Concomitant]
     Indication: ANTICOAGULANT THERAPY
     Dosage: UNK

REACTIONS (5)
  - Cerebrovascular accident [Unknown]
  - Brain injury [Unknown]
  - Pulmonary embolism [Unknown]
  - Diabetes mellitus inadequate control [Not Recovered/Not Resolved]
  - Renal disorder [Unknown]
